FAERS Safety Report 10038475 (Version 1)
Quarter: 2014Q1

REPORT INFORMATION
  Report Type: Spontaneous
  Country: US (occurrence: US)
  Receive Date: 20140326
  Receipt Date: 20140326
  Transmission Date: 20141002
  Serious: No
  Sender: FDA-Public Use
  Company Number: US-PFIZER INC-2014085442

PATIENT
  Age: 62 Year
  Sex: Female
  Weight: 111.11 kg

DRUGS (4)
  1. CELEBREX [Suspect]
     Indication: ARTHRITIS
     Dosage: 200 MG, 1X/DAY
     Route: 048
     Dates: start: 201401, end: 20140321
  2. BENICAR [Concomitant]
     Dosage: UNK, 1X/DAY
  3. ESTRACE [Concomitant]
     Dosage: UNK, 1X/DAY
  4. PANTOPRAZOLE [Concomitant]
     Dosage: UNK, 1X/DAY

REACTIONS (2)
  - Pain [Unknown]
  - Bone pain [Unknown]
